FAERS Safety Report 24396405 (Version 1)
Quarter: 2024Q4

REPORT INFORMATION
  Report Type: Spontaneous
  Country: IT (occurrence: IT)
  Receive Date: 20241004
  Receipt Date: 20241004
  Transmission Date: 20250115
  Serious: Yes (Other)
  Sender: RANBAXY
  Company Number: IT-MINISAL02-997480

PATIENT
  Age: 60 Year
  Sex: Male

DRUGS (2)
  1. GEMCITABINE [Suspect]
     Active Substance: GEMCITABINE
     Indication: Biliary neoplasm
     Dosage: 1000 MG
     Route: 065
     Dates: start: 20240717, end: 20240717
  2. CISPLATIN [Suspect]
     Active Substance: CISPLATIN
     Indication: Biliary neoplasm
     Dosage: 25 MG
     Route: 065
     Dates: start: 20240717, end: 20240717

REACTIONS (2)
  - Thrombocytopenia [Not Recovered/Not Resolved]
  - Off label use [Not Recovered/Not Resolved]

NARRATIVE: CASE EVENT DATE: 20240717
